FAERS Safety Report 19883409 (Version 1)
Quarter: 2021Q3

REPORT INFORMATION
  Report Type: Spontaneous
  Country: US (occurrence: US)
  Receive Date: 20210926
  Receipt Date: 20210926
  Transmission Date: 20211014
  Serious: No
  Sender: FDA-Public Use
  Company Number: US-009507513-2109USA004071

PATIENT
  Age: 72 Year

DRUGS (1)
  1. KEYTRUDA [Suspect]
     Active Substance: PEMBROLIZUMAB
     Dosage: UNK

REACTIONS (6)
  - Dizziness postural [Unknown]
  - Renal pain [Unknown]
  - Ill-defined disorder [Unknown]
  - Fall [Unknown]
  - Vision blurred [Unknown]
  - Balance disorder [Unknown]
